FAERS Safety Report 8963940 (Version 4)
Quarter: 2013Q1

REPORT INFORMATION
  Report Type: Spontaneous
  Country: US (occurrence: US)
  Receive Date: 20121214
  Receipt Date: 20130128
  Transmission Date: 20140127
  Serious: No
  Sender: FDA-Public Use
  Company Number: US-PFIZER INC-2012312822

PATIENT
  Age: 54 Year
  Sex: Female
  Weight: 84 kg

DRUGS (3)
  1. PREMARIN [Suspect]
     Indication: ATROPHIC VULVOVAGINITIS
     Dosage: UNK, 1X/DAY
     Route: 067
     Dates: start: 20121207
  2. VITAMIN D [Concomitant]
     Indication: OSTEOPOROSIS
     Dosage: UNK
  3. CALCIUM [Concomitant]
     Dosage: UNK

REACTIONS (4)
  - Pyrexia [Not Recovered/Not Resolved]
  - Abdominal pain [Not Recovered/Not Resolved]
  - Discomfort [Not Recovered/Not Resolved]
  - Pain [Not Recovered/Not Resolved]
